FAERS Safety Report 5021684-3 (Version None)
Quarter: 2006Q2

REPORT INFORMATION
  Report Type: 
  Country: None (occurrence: None)
  Receive Date: 20060605
  Receipt Date: 20060522
  Transmission Date: 20061013
  Serious: Yes (Disabling, Other)
  Sender: FDA-Public Use
  Company Number: 2006066755

PATIENT
  Sex: Female

DRUGS (1)
  1. ZITHROMAX [Suspect]
     Indication: ILL-DEFINED DISORDER
     Dates: start: 20060515, end: 20060501

REACTIONS (3)
  - DIFFICULTY IN WALKING [None]
  - GAIT DISTURBANCE [None]
  - PARAESTHESIA [None]
